FAERS Safety Report 5735363-8 (Version None)
Quarter: 2008Q2

REPORT INFORMATION
  Report Type: 
  Country: None (occurrence: None)
  Receive Date: 20080505
  Receipt Date: 20080326
  Transmission Date: 20081010
  Serious: Yes (Hospitalization)
  Sender: FDA-Public Use
  Company Number: PHEH2008US03218

PATIENT
  Age: 88 Year
  Sex: Male

DRUGS (9)
  1. EXELON [Suspect]
     Indication: DEMENTIA ALZHEIMER'S TYPE
     Dosage: 9.5 MG ; 4.6 MG, QD, TRANSDERMAL
     Route: 062
     Dates: start: 20080301
  2. SERQUEL (QUETIAPINE FUMARATE) [Concomitant]
  3. FORTICAL /KOR/ (BACILLUS SUBTILIS, STREPTOCOCCUS FAECALIS) [Concomitant]
  4. LEVOTHYROXINE SODIUM [Concomitant]
  5. FINASTERIDE [Concomitant]
  6. LANSOPRAZOLE [Concomitant]
  7. ALPRAZOLAM [Concomitant]
  8. TERAZOSIN HCL [Concomitant]
  9. METOPROLOL TARTRATE [Concomitant]

REACTIONS (1)
  - HAEMATEMESIS [None]
